FAERS Safety Report 10841588 (Version 5)
Quarter: 2015Q2

REPORT INFORMATION
  Report Type: Report from Study
  Country: US (occurrence: US)
  Receive Date: 20150220
  Receipt Date: 20150522
  Transmission Date: 20150821
  Serious: Yes (Death, Hospitalization)
  Sender: FDA-Public Use
  Company Number: US-BIOGENIDEC-2015BI017990

PATIENT
  Age: 50 Year
  Sex: Female

DRUGS (1)
  1. AVONEX [Suspect]
     Active Substance: INTERFERON BETA-1A
     Indication: MULTIPLE SCLEROSIS
     Route: 030
     Dates: start: 20010223

REACTIONS (8)
  - Abasia [Unknown]
  - Mobility decreased [Unknown]
  - Fall [Recovered/Resolved]
  - Death [Fatal]
  - Thermal burn [Unknown]
  - Urosepsis [Recovered/Resolved]
  - Hypoaesthesia [Unknown]
  - Decubitus ulcer [Unknown]

NARRATIVE: CASE EVENT DATE: 201411
